FAERS Safety Report 10517037 (Version 2)
Quarter: 2014Q4

REPORT INFORMATION
  Report Type: Spontaneous
  Country: FR (occurrence: DE)
  Receive Date: 20141014
  Receipt Date: 20141014
  Transmission Date: 20150528
  Serious: Yes (Other)
  Sender: FDA-Public Use
  Company Number: FR-MYLANLABS-2008S1001372

PATIENT

DRUGS (8)
  1. GENOTROPIN [Concomitant]
     Active Substance: SOMATROPIN
     Dosage: UNK
     Dates: start: 19970916
  2. MERCAPTAMINE BITARTRATE [Suspect]
     Active Substance: CYSTEAMINE
     Indication: CYSTINOSIS
     Dosage: 800 MG,QD
     Route: 048
     Dates: start: 200410, end: 200602
  3. MERCAPTAMINE BITARTRATE [Suspect]
     Active Substance: CYSTEAMINE
     Dosage: 950 MG,QD
     Route: 048
     Dates: start: 200602, end: 200605
  4. MERCAPTAMINE BITARTRATE [Suspect]
     Active Substance: CYSTEAMINE
     Dosage: 500 MG,QD
     Route: 048
     Dates: start: 200605, end: 200702
  5. REDUCTO-SPEZIAL [Concomitant]
     Dosage: UNK
     Dates: start: 2001
  6. CYSTEAMINE /00492501/ [Concomitant]
     Dosage: UNK
     Dates: start: 2004
  7. REKAWAN [Concomitant]
     Active Substance: POTASSIUM CHLORIDE
     Dosage: UNK
     Dates: start: 2001
  8. MERCAPTAMINE BITARTRATE [Suspect]
     Active Substance: CYSTEAMINE
     Dosage: 1100 MG,QD
     Route: 048
     Dates: start: 200702

REACTIONS (2)
  - Skin infection [Recovered/Resolved]
  - Eyelid oedema [Recovered/Resolved]
